FAERS Safety Report 5514266-8 (Version None)
Quarter: 2007Q4

REPORT INFORMATION
  Report Type: 
  Country: None (occurrence: None)
  Receive Date: 20071106
  Receipt Date: 20070720
  Transmission Date: 20080405
  Serious: Yes (Other)
  Sender: FDA-Public Use
  Company Number: US200706005698

PATIENT
  Sex: Female

DRUGS (31)
  1. PROZAC [Suspect]
     Indication: DEPRESSION
     Dosage: 20 MG, DAILY (1/D) ; 20 MG, QOD ; 80 MG
     Dates: start: 20001018
  2. PROZAC [Suspect]
     Indication: DEPRESSION
     Dosage: 20 MG, DAILY (1/D) ; 20 MG, QOD ; 80 MG
     Dates: start: 20020101
  3. PROZAC [Suspect]
     Indication: DEPRESSION
     Dosage: 20 MG, DAILY (1/D) ; 20 MG, QOD ; 80 MG
     Dates: start: 20020517
  4. PROZAC [Suspect]
     Indication: DEPRESSION
     Dosage: 20 MG, DAILY (1/D) ; 20 MG, QOD ; 80 MG
     Dates: start: 20021109
  5. PROZAC [Suspect]
     Indication: DEPRESSION
     Dosage: 20 MG, DAILY (1/D) ; 20 MG, QOD ; 80 MG
     Dates: start: 20040101
  6. PAXIL [Concomitant]
  7. BENADRYL (DIPHENHYDRAMINE HYDROCHLORIDE, PARACETAMOL, PSEUDOEPHEDRINE [Concomitant]
  8. K-DUR 10 [Concomitant]
  9. PHENERGAN (PROMETHAZINE HYDROCHLORIDE) [Concomitant]
  10. POTASSIUM CHLORIDE (POTASSIUM CHLORIDE UNKNOWN FORMULATION) UNKNOWN [Concomitant]
  11. ORTHO-NOVUM 7/7/7 (ETHINYLESTRADIOL, NORETHISTERONE) [Concomitant]
  12. TEQUIN [Concomitant]
  13. TUSSIONEX [Concomitant]
  14. ALLEGRA (FEXOFENADINE HYDROCHLORIDE) [Concomitant]
  15. ERYTHROMYCIN (ERYTHROMYCIN UNKNOWN FORMULATION) UNKNOWN [Concomitant]
  16. VIOXX [Concomitant]
  17. TYLENOL /USA/ (PARACETAMOL) [Concomitant]
  18. VANQUISH (ACETYLSALICYLIC ACID, ALUMINUM HYDROXIDE GEL, DRIED, CAFFEIN [Concomitant]
  19. AMOXICILLIN [Concomitant]
  20. ADVIL /00109201/ (IBUPROFEN) [Concomitant]
  21. ALEVE (NAPROXEN SODIUM, PSEUDOEPHEDRINE HYDROCHLORIDE) [Concomitant]
  22. NORTRIPTYLINE HCL [Concomitant]
  23. AMITRIPTYLINE HCL [Concomitant]
  24. RITALIN [Concomitant]
  25. XENADRINE RFA-1 (ACETYLCARNITINE, CITRUS AURANTIUM, EPHEDRA SPP., LEVO [Concomitant]
  26. OXYCONTIN [Concomitant]
  27. PERCOCET [Concomitant]
  28. KLONOPIN [Concomitant]
  29. SEROQUEL [Concomitant]
  30. PREDNISONE [Concomitant]
  31. ZOLOFT [Concomitant]

REACTIONS (47)
  - ABDOMINAL PAIN UPPER [None]
  - ABNORMAL BEHAVIOUR [None]
  - AGITATION [None]
  - AKATHISIA [None]
  - ANOREXIA [None]
  - ANXIETY [None]
  - BLOOD ELECTROLYTES ABNORMAL [None]
  - BLOOD GLUCOSE INCREASED [None]
  - BLOOD POTASSIUM DECREASED [None]
  - BLUNTED AFFECT [None]
  - BRONCHITIS [None]
  - BRONCHOPNEUMONIA [None]
  - CARBON DIOXIDE INCREASED [None]
  - CERUMEN IMPACTION [None]
  - CHEST DISCOMFORT [None]
  - COUGH [None]
  - DEPERSONALISATION [None]
  - DIZZINESS POSTURAL [None]
  - DRUG INEFFECTIVE [None]
  - DYSPNOEA [None]
  - FEELING OF BODY TEMPERATURE CHANGE [None]
  - FLUSHING [None]
  - GAMBLING [None]
  - HEADACHE [None]
  - HEART RATE INCREASED [None]
  - HYPOKALAEMIA [None]
  - HYPOTENSION [None]
  - INSOMNIA [None]
  - LIBIDO DECREASED [None]
  - LYMPHADENOPATHY [None]
  - MEMORY IMPAIRMENT [None]
  - MENSTRUATION IRREGULAR [None]
  - MUSCULAR WEAKNESS [None]
  - NASAL CONGESTION [None]
  - NAUSEA [None]
  - PALLOR [None]
  - PHAGOPHOBIA [None]
  - PHARYNGOLARYNGEAL PAIN [None]
  - PRODUCTIVE COUGH [None]
  - PRURITUS GENERALISED [None]
  - PYREXIA [None]
  - RASH ERYTHEMATOUS [None]
  - SOCIAL AVOIDANT BEHAVIOUR [None]
  - SUICIDAL IDEATION [None]
  - SUICIDE ATTEMPT [None]
  - TREMOR [None]
  - UPPER RESPIRATORY TRACT INFECTION [None]
